FAERS Safety Report 7574739-3 (Version None)
Quarter: 2011Q2

REPORT INFORMATION
  Report Type: 
  Country: None (occurrence: None)
  Receive Date: 20110627
  Receipt Date: 20110616
  Transmission Date: 20111010
  Serious: Yes (Other)
  Sender: FDA-Public Use
  Company Number: PHHY2011GB29195

PATIENT
  Age: 58 Year
  Sex: Male
  Weight: 72 kg

DRUGS (3)
  1. MONTELUKAST SODIUM [Concomitant]
     Dosage: UNK UKN, UNK
     Dates: start: 20101007, end: 20101230
  2. SIMVASTATIN [Suspect]
     Dosage: UNK UKN, UNK
     Dates: end: 20110329
  3. ROSUVASTATIN [Concomitant]
     Dosage: UNK UKN, UNK
     Dates: start: 20101007, end: 20101230

REACTIONS (1)
  - ABNORMAL LOSS OF WEIGHT [None]
